FAERS Safety Report 6462281-2 (Version None)
Quarter: 2009Q4

REPORT INFORMATION
  Report Type: 
  Country: None (occurrence: None)
  Receive Date: 20091124
  Receipt Date: 20091113
  Transmission Date: 20100525
  Serious: Yes (Life-Threatening, Hospitalization)
  Sender: FDA-Public Use
  Company Number: 230536M09USA

PATIENT
  Age: 43 Year
  Sex: Female

DRUGS (2)
  1. REBIF [Suspect]
     Indication: MULTIPLE SCLEROSIS
     Dosage: 44 MCG, 3 IN 1 WEEKS
  2. DIAZEPAM [Suspect]
     Indication: CONVULSION
     Dates: start: 20091112

REACTIONS (5)
  - CENTRAL NERVOUS SYSTEM LESION [None]
  - CONVULSION [None]
  - DEHYDRATION [None]
  - RESPIRATORY ARREST [None]
  - URINARY TRACT INFECTION [None]
